FAERS Safety Report 8950514 (Version 1)
Quarter: 2012Q4

REPORT INFORMATION
  Report Type: Spontaneous
  Country: DE (occurrence: None)
  Receive Date: 20121127
  Receipt Date: 20121127
  Transmission Date: 20130627
  Serious: Yes (Life-Threatening, Hospitalization, Congenital Anomaly, Other)
  Sender: FDA-Public Use
  Company Number: GER/GER/12/0026767

PATIENT
  Sex: Female

DRUGS (1)
  1. FLUOXETINE [Suspect]
     Indication: DRUG USE FOR UNKNOWN INDICATION
     Route: 064
     Dates: start: 20110430, end: 20120202

REACTIONS (7)
  - Neonatal asphyxia [None]
  - Persistent foetal circulation [None]
  - Atelectasis neonatal [None]
  - Atrial septal defect [None]
  - Patent ductus arteriosus [None]
  - Caesarean section [None]
  - Maternal drugs affecting foetus [None]
